FAERS Safety Report 14444480 (Version 6)
Quarter: 2019Q1

REPORT INFORMATION
  Report Type: Spontaneous
  Country: DE (occurrence: DE)
  Receive Date: 20180126
  Receipt Date: 20190119
  Transmission Date: 20190417
  Serious: Yes (Hospitalization, Other)
  Sender: FDA-Public Use
  Company Number: DE-AUROBINDO-AUR-APL-2018-001664

PATIENT
  Age: 43 Year
  Sex: Female

DRUGS (19)
  1. DOCETAXEL. [Suspect]
     Active Substance: DOCETAXEL
     Indication: BREAST CANCER
     Dosage: 4 CYCLES OF DOCETAXEL/TRASTUZUMAB () ; CYCLICAL
     Route: 065
  2. DOCETAXEL. [Suspect]
     Active Substance: DOCETAXEL
     Indication: BREAST CANCER FEMALE
  3. MIRTAZAPINE. [Suspect]
     Active Substance: MIRTAZAPINE
     Indication: COGNITIVE DISORDER
     Dosage: 15 MILLIGRAM, ONCE A DAY
     Route: 065
  4. DOCETAXEL. [Suspect]
     Active Substance: DOCETAXEL
     Indication: BREAST CANCER
  5. EPIRUBICIN [Suspect]
     Active Substance: EPIRUBICIN
     Indication: BREAST CANCER FEMALE
  6. GOSERELIN [Suspect]
     Active Substance: GOSERELIN
     Indication: BREAST CANCER FEMALE
     Dosage: UNK
     Route: 065
  7. GOSERELIN [Suspect]
     Active Substance: GOSERELIN
     Indication: BREAST CANCER
  8. ARIPIPRAZOLE. [Suspect]
     Active Substance: ARIPIPRAZOLE
     Indication: COGNITIVE DISORDER
     Dosage: 5 MILLIGRAM, ONCE A DAY
     Route: 065
  9. QUETIAPINE. [Suspect]
     Active Substance: QUETIAPINE
     Indication: COGNITIVE DISORDER
     Dosage: 150 MILLIGRAM, ONCE A DAY
     Route: 065
  10. CYCLOPHOSPHAMIDE. [Suspect]
     Active Substance: CYCLOPHOSPHAMIDE
     Indication: BREAST CANCER
  11. EPIRUBICIN [Suspect]
     Active Substance: EPIRUBICIN
     Indication: BREAST CANCER
  12. VENLAFAXINE [Suspect]
     Active Substance: VENLAFAXINE HYDROCHLORIDE
     Indication: COGNITIVE DISORDER
     Dosage: 112.5 MILLIGRAM, ONCE A DAY
     Route: 065
  13. CYCLOPHOSPHAMIDE. [Suspect]
     Active Substance: CYCLOPHOSPHAMIDE
     Indication: BREAST CANCER
     Dosage: UNK UNK, CYCLICAL
     Route: 065
  14. CYCLOPHOSPHAMIDE. [Suspect]
     Active Substance: CYCLOPHOSPHAMIDE
     Indication: BREAST CANCER FEMALE
     Dosage: 4 CYCLES OF EPIRUBICIN/CYCLOPHOSPHAMIDE () ; CYCLICAL
     Route: 065
  15. EPIRUBICIN [Suspect]
     Active Substance: EPIRUBICIN
     Indication: BREAST CANCER
     Dosage: UNK UNK, CYCLICAL
     Route: 065
  16. TRASTUZUMAB. [Suspect]
     Active Substance: TRASTUZUMAB
     Indication: BREAST CANCER
     Dosage: 2?4 CYCLICAL
     Route: 065
  17. TRASTUZUMAB. [Suspect]
     Active Substance: TRASTUZUMAB
     Indication: BREAST CANCER FEMALE
     Dosage: 4 CYCLES WITH DOCETAXEL/TRASTUZUMAB, AND THEN TRASTUZUMAB WAS GIVEN ALONE FOR 1 YEAR () ; CYCLICA...
     Route: 065
  18. LITHIUM CARBONATE. [Suspect]
     Active Substance: LITHIUM CARBONATE
     Indication: COGNITIVE DISORDER
     Dosage: 675 MILLIGRAM, ONCE A DAY
     Route: 065
  19. TRASTUZUMAB. [Suspect]
     Active Substance: TRASTUZUMAB
     Indication: BREAST CANCER
     Dosage: UNK UNK, CYCLICAL
     Route: 065

REACTIONS (13)
  - Arachnoid cyst [Not Recovered/Not Resolved]
  - Mood swings [Recovering/Resolving]
  - Depressed mood [Recovering/Resolving]
  - Merycism [Not Recovered/Not Resolved]
  - Logorrhoea [Not Recovered/Not Resolved]
  - Disturbance in attention [Not Recovered/Not Resolved]
  - Agitation [Not Recovered/Not Resolved]
  - Suicidal ideation [Not Recovered/Not Resolved]
  - Product use in unapproved indication [Unknown]
  - Memory impairment [Not Recovered/Not Resolved]
  - Off label use [Recovering/Resolving]
  - Cerebral atrophy [Not Recovered/Not Resolved]
  - Cognitive disorder [Recovering/Resolving]
